FAERS Safety Report 24660237 (Version 1)
Quarter: 2024Q4

REPORT INFORMATION
  Report Type: Spontaneous
  Country: US (occurrence: US)
  Receive Date: 20241125
  Receipt Date: 20241125
  Transmission Date: 20250115
  Serious: No
  Sender: TAKEDA
  Company Number: US-TAKEDA-2024TUS117282

PATIENT

DRUGS (1)
  1. HUMAN IMMUNOGLOBULIN G [Suspect]
     Active Substance: HUMAN IMMUNOGLOBULIN G
     Indication: Mannose-binding lectin deficiency
     Dosage: UNK

REACTIONS (3)
  - Product use in unapproved indication [Unknown]
  - Adverse drug reaction [Unknown]
  - No adverse event [Unknown]
